FAERS Safety Report 19006292 (Version 1)
Quarter: 2021Q1

REPORT INFORMATION
  Report Type: Spontaneous
  Country: GB (occurrence: GB)
  Receive Date: 20210315
  Receipt Date: 20210315
  Transmission Date: 20210420
  Serious: Yes (Other)
  Sender: FDA-Public Use
  Company Number: GB-CELLTRION INC.-2021GB003134

PATIENT

DRUGS (2)
  1. REMSIMA [Suspect]
     Active Substance: INFLIXIMAB
     Indication: PRODUCT USED FOR UNKNOWN INDICATION
     Dosage: 120 MG EVERY 2 WEEKS (PRESCRIBED)
  2. REMSIMA [Suspect]
     Active Substance: INFLIXIMAB
     Dosage: 120 MG EVERY WEEK (DELIVERY, PREVIOUS INFUSION IN HOSPITAL)
     Route: 058
     Dates: start: 202102

REACTIONS (4)
  - Eye infection [Unknown]
  - Off label use [Unknown]
  - COVID-19 [Unknown]
  - Intentional dose omission [Unknown]

NARRATIVE: CASE EVENT DATE: 202012
